FAERS Safety Report 9168589 (Version 2)
Quarter: 2013Q2

REPORT INFORMATION
  Report Type: Spontaneous
  Country: US (occurrence: US)
  Receive Date: 20130318
  Receipt Date: 20130425
  Transmission Date: 20140414
  Serious: Yes (Other)
  Sender: FDA-Public Use
  Company Number: US-PFIZER INC-2013088967

PATIENT
  Age: 48 Year
  Sex: Female
  Weight: 61.22 kg

DRUGS (1)
  1. PRISTIQ [Suspect]
     Indication: ANXIETY
     Dosage: 100 MG, DAILY
     Route: 048
     Dates: end: 201303

REACTIONS (8)
  - Activities of daily living impaired [Unknown]
  - Malaise [Unknown]
  - Feeling abnormal [Unknown]
  - Tinnitus [Unknown]
  - Lip disorder [Unknown]
  - Hyperhidrosis [Unknown]
  - Chills [Unknown]
  - Nausea [Unknown]
